FAERS Safety Report 8068460-5 (Version None)
Quarter: 2012Q1

REPORT INFORMATION
  Report Type: 
  Country: None (occurrence: None)
  Receive Date: 20120124
  Receipt Date: 20111027
  Transmission Date: 20120608
  Serious: No
  Sender: FDA-Public Use
  Company Number: US-AMGEN-USASP2011056061

PATIENT
  Age: 55 Year
  Sex: Female

DRUGS (4)
  1. VITAMIN D [Concomitant]
  2. CALCIUM [Concomitant]
  3. VIACTIV                            /00751501/ [Concomitant]
  4. PROLIA [Suspect]
     Indication: OSTEOPOROSIS POSTMENOPAUSAL
     Dosage: 60 MG, Q6MO
     Dates: start: 20110519

REACTIONS (2)
  - BONE PAIN [None]
  - BACK PAIN [None]
